FAERS Safety Report 17561175 (Version 1)
Quarter: 2020Q1

REPORT INFORMATION
  Report Type: Spontaneous
  Country: US (occurrence: US)
  Receive Date: 20200319
  Receipt Date: 20200319
  Transmission Date: 20200409
  Serious: Yes (Other)
  Sender: FDA-Public Use
  Company Number: US-JNJFOC-20200315308

PATIENT
  Sex: Male

DRUGS (2)
  1. SPRAVATO [Suspect]
     Active Substance: ESKETAMINE
     Indication: DEPRESSION
     Dates: end: 20200305
  2. SPRAVATO [Suspect]
     Active Substance: ESKETAMINE

REACTIONS (4)
  - Fear [Recovered/Resolved]
  - Hallucination [Recovered/Resolved]
  - Vomiting [Recovered/Resolved]
  - Anxiety [Recovered/Resolved]
